FAERS Safety Report 6860893-5 (Version None)
Quarter: 2010Q3

REPORT INFORMATION
  Report Type: 
  Country: None (occurrence: None)
  Receive Date: 20100720
  Receipt Date: 20100706
  Transmission Date: 20110219
  Serious: Yes (Other)
  Sender: FDA-Public Use
  Company Number: US-ELI_LILLY_AND_COMPANY-US201005007657

PATIENT
  Age: 86 Year
  Sex: Female

DRUGS (7)
  1. FORTEO [Suspect]
     Indication: OSTEOPOROSIS
     Dosage: 20 UG, DAILY (1/D)
  2. PREMARIN [Concomitant]
  3. HYDRODIURIL [Concomitant]
  4. XANAX [Concomitant]
  5. ATACAND [Concomitant]
  6. PRILOSEC [Concomitant]
  7. LEXAPRO [Concomitant]

REACTIONS (5)
  - FATIGUE [None]
  - HEADACHE [None]
  - MACULAR DEGENERATION [None]
  - PERIPHERAL COLDNESS [None]
  - VISION BLURRED [None]
